FAERS Safety Report 4578046-2 (Version None)
Quarter: 2005Q1

REPORT INFORMATION
  Report Type: 
  Country: None (occurrence: None)
  Receive Date: 20050211
  Receipt Date: 20050202
  Transmission Date: 20050727
  Serious: Yes (Hospitalization)
  Sender: FDA-Public Use
  Company Number: US-ABBOTT-05P-163-0289416-00

PATIENT
  Sex: Female

DRUGS (8)
  1. KALETRA [Suspect]
     Indication: ACQUIRED IMMUNODEFICIENCY SYNDROME
     Route: 048
     Dates: start: 20040501, end: 20041019
  2. KALETRA [Suspect]
     Route: 048
     Dates: start: 20041201
  3. CALCIUM GLUCONATE [Concomitant]
     Indication: DRUG USE FOR UNKNOWN INDICATION
     Route: 048
  4. PROCHLORPERAZINE EDISYLATE [Concomitant]
     Indication: DRUG USE FOR UNKNOWN INDICATION
     Route: 048
  5. IMODIUM [Concomitant]
     Indication: DIARRHOEA
     Route: 048
  6. TERDEXORA [Concomitant]
     Indication: DRUG USE FOR UNKNOWN INDICATION
     Route: 048
  7. PANTOPRAZOLE [Concomitant]
     Indication: GASTROOESOPHAGEAL REFLUX DISEASE
  8. DAPSONE [Concomitant]
     Indication: INFECTION PROPHYLAXIS

REACTIONS (1)
  - MENINGITIS CRYPTOCOCCAL [None]
